FAERS Safety Report 19323715 (Version 1)
Quarter: 2021Q2

REPORT INFORMATION
  Report Type: Spontaneous
  Country: FI (occurrence: FI)
  Receive Date: 20210528
  Receipt Date: 20210528
  Transmission Date: 20210717
  Serious: Yes (Other)
  Sender: FDA-Public Use
  Company Number: FI-009507513-2105FIN006023

PATIENT
  Age: 23 Year
  Sex: Male

DRUGS (2)
  1. DABRAFENIB [Concomitant]
     Active Substance: DABRAFENIB
     Indication: BRAF V600E MUTATION POSITIVE
  2. INTERFERON ALFA?2B [Suspect]
     Active Substance: INTERFERON ALFA-2B
     Indication: MALIGNANT MELANOMA
     Dosage: UNK
     Dates: start: 201207

REACTIONS (1)
  - Metastases to liver [Unknown]

NARRATIVE: CASE EVENT DATE: 201309
